APPROVED DRUG PRODUCT: SYMADINE
Active Ingredient: AMANTADINE HYDROCHLORIDE
Strength: 100MG
Dosage Form/Route: CAPSULE;ORAL
Application: A071000 | Product #001
Applicant: SOLVAY PHARMACEUTICALS
Approved: Sep 4, 1986 | RLD: No | RS: No | Type: DISCN